FAERS Safety Report 22040425 (Version 1)
Quarter: 2023Q1

REPORT INFORMATION
  Report Type: Spontaneous
  Country: US (occurrence: US)
  Receive Date: 20230227
  Receipt Date: 20230227
  Transmission Date: 20230418
  Serious: No
  Sender: FDA-Public Use
  Company Number: US-009507513-2302USA007814

PATIENT
  Sex: Male

DRUGS (1)
  1. VERQUVO [Suspect]
     Active Substance: VERICIGUAT
     Indication: Cardiac failure chronic
     Dosage: 1 TABLET, 2.5 MILLIGRAM, DAILY
     Route: 048

REACTIONS (1)
  - Fatigue [Recovered/Resolved]
